FAERS Safety Report 17371815 (Version 3)
Quarter: 2020Q1

REPORT INFORMATION
  Report Type: Spontaneous
  Country: US (occurrence: US)
  Receive Date: 20200205
  Receipt Date: 20200323
  Transmission Date: 20200409
  Serious: Yes (Disabling, Other)
  Sender: FDA-Public Use
  Company Number: NVSC2020US028458

PATIENT
  Sex: Male
  Weight: 76 kg

DRUGS (1)
  1. LUTATHERA [Suspect]
     Active Substance: LUTETIUM OXODOTREOTIDE LU-177
     Indication: NEUROENDOCRINE TUMOUR
     Dosage: UNK (8 WEEKS)
     Route: 042

REACTIONS (9)
  - Metastases to bone [Unknown]
  - Malaise [Unknown]
  - Carcinoid heart disease [Not Recovered/Not Resolved]
  - Metastases to liver [Unknown]
  - Oedema [Unknown]
  - Flushing [Unknown]
  - Diarrhoea [Unknown]
  - Fluid overload [Unknown]
  - Hepatitis [Unknown]
